FAERS Safety Report 7632595-9 (Version None)
Quarter: 2011Q3

REPORT INFORMATION
  Report Type: 
  Country: None (occurrence: None)
  Receive Date: 20110725
  Receipt Date: 20101129
  Transmission Date: 20111222
  Serious: No
  Sender: FDA-Public Use
  Company Number: US-BRISTOL-MYERS SQUIBB COMPANY-15353766

PATIENT
  Age: 81 Year
  Sex: Female

DRUGS (3)
  1. WARFARIN SODIUM [Suspect]
     Indication: PHLEBITIS
     Dosage: 5 MG TABS IN THE EVE EXCEPT SUNDAY,5MGX5,2.5MGX1
     Route: 048
     Dates: start: 20100722
  2. NEURONTIN [Concomitant]
     Dosage: FOR 5-6 YEARS
  3. HYDROCHLOROTHIAZIDE [Concomitant]

REACTIONS (5)
  - HAEMOPTYSIS [None]
  - IMPAIRED HEALING [None]
  - WOUND HAEMORRHAGE [None]
  - OEDEMA PERIPHERAL [None]
  - RASH MACULAR [None]
